FAERS Safety Report 23202344 (Version 5)
Quarter: 2024Q4

REPORT INFORMATION
  Report Type: Spontaneous
  Country: US (occurrence: US)
  Receive Date: 20231120
  Receipt Date: 20241018
  Transmission Date: 20250114
  Serious: Yes (Hospitalization, Other)
  Sender: SANOFI AVENTIS
  Company Number: US-SA-2023SA357171

PATIENT
  Age: 77 Year
  Sex: Female

DRUGS (2)
  1. FABRAZYME [Suspect]
     Active Substance: AGALSIDASE BETA
     Indication: Fabry^s disease
     Dosage: 55 MG (IN 250ML NORMAL SALINE (TOTAL VOLUME) OVER APPROX 3 HOURS VIA INFUSION PUMP), QOW
     Route: 042
     Dates: start: 202104
  2. FABRAZYME [Suspect]
     Active Substance: AGALSIDASE BETA
     Dosage: 55 MG (IN 250ML NORMAL SALINE (TOTAL VOLUME) OVER APPROX 3 HOURS VIA INFUSION PUMP), QOW
     Route: 042

REACTIONS (4)
  - Atrial fibrillation [Not Recovered/Not Resolved]
  - SARS-CoV-2 test positive [Recovering/Resolving]
  - Infusion site rash [Unknown]
  - Urinary tract infection [Unknown]

NARRATIVE: CASE EVENT DATE: 20231101
